FAERS Safety Report 5487500-0 (Version None)
Quarter: 2007Q4

REPORT INFORMATION
  Report Type: 
  Country: None (occurrence: None)
  Receive Date: 20071016
  Receipt Date: 20071004
  Transmission Date: 20080405
  Serious: Yes (Other)
  Sender: FDA-Public Use
  Company Number: GB-PFIZER INC-2007083880

PATIENT
  Age: 49 Year
  Sex: Female
  Weight: 65 kg

DRUGS (8)
  1. ELETRIPTAN [Suspect]
     Indication: MIGRAINE
     Route: 048
     Dates: start: 20070208, end: 20070822
  2. AMITRIPTYLINE HCL [Concomitant]
  3. CO-CODAMOL [Concomitant]
  4. DICLOFENAC [Concomitant]
  5. FROVATRIPTAN [Concomitant]
     Route: 048
  6. RIZATRIPTAN BENZOATE [Concomitant]
     Route: 048
  7. TEGRETOL [Concomitant]
     Route: 048
  8. TEMAZEPAM [Concomitant]
     Route: 048

REACTIONS (3)
  - NASOPHARYNGITIS [None]
  - PALLOR [None]
  - RAYNAUD'S PHENOMENON [None]
